FAERS Safety Report 9353079 (Version 1)
Quarter: 2013Q2

REPORT INFORMATION
  Report Type: Spontaneous
  Country: US (occurrence: None)
  Receive Date: 20130612
  Receipt Date: 20130612
  Transmission Date: 20140414
  Serious: Yes (Death)
  Sender: FDA-Public Use
  Company Number: 1753465

PATIENT
  Age: 25 Year
  Sex: Male

DRUGS (1)
  1. PROPOFOL [Suspect]
     Indication: NEUROSURGERY
     Route: 041

REACTIONS (12)
  - Ventricular tachycardia [None]
  - Cardiac arrest [None]
  - Propofol infusion syndrome [None]
  - Metabolic acidosis [None]
  - Blood lactic acid increased [None]
  - Blood creatine phosphokinase increased [None]
  - Tachycardia [None]
  - Hypotension [None]
  - Oliguria [None]
  - Hyperkalaemia [None]
  - Continuous haemodiafiltration [None]
  - Electrolyte imbalance [None]
